FAERS Safety Report 4973221-7 (Version None)
Quarter: 2006Q2

REPORT INFORMATION
  Report Type: 
  Country: None (occurrence: None)
  Receive Date: 20060414
  Receipt Date: 20050112
  Transmission Date: 20061013
  Serious: Yes (Hospitalization, Other)
  Sender: FDA-Public Use
  Company Number: US-MERCK-0501USA01833

PATIENT
  Age: 48 Year
  Sex: Female
  Weight: 80 kg

DRUGS (1)
  1. VIOXX [Suspect]
     Indication: OSTEOARTHRITIS
     Route: 048
     Dates: start: 19990101, end: 20020101

REACTIONS (24)
  - ANGINA UNSTABLE [None]
  - ARTHRALGIA [None]
  - BONE DISORDER [None]
  - CARDIOMEGALY [None]
  - CEREBROVASCULAR ACCIDENT [None]
  - CHEST PAIN [None]
  - CORONARY ARTERY DISEASE [None]
  - COUGH [None]
  - DEPRESSION [None]
  - DYSPNOEA [None]
  - FACE INJURY [None]
  - FALL [None]
  - HEMIPARESIS [None]
  - HOT FLUSH [None]
  - LIMB INJURY [None]
  - LUNG DISORDER [None]
  - MITRAL VALVE PROLAPSE [None]
  - NECK INJURY [None]
  - NEPHROLITHIASIS [None]
  - OVARIAN MASS [None]
  - PAIN [None]
  - THROMBOSIS [None]
  - VENTRICULAR HYPERTROPHY [None]
  - VOCAL CORD CYST [None]
